FAERS Safety Report 7729660-4 (Version None)
Quarter: 2011Q3

REPORT INFORMATION
  Report Type: 
  Country: None (occurrence: None)
  Receive Date: 20110901
  Receipt Date: 20110901
  Transmission Date: 20111222
  Serious: Yes (Hospitalization)
  Sender: FDA-Public Use
  Company Number: None

PATIENT
  Age: 50 Year
  Sex: Male
  Weight: 83.9 kg

DRUGS (1)
  1. ROSUVASTATIN [Suspect]
     Indication: HYPERLIPIDAEMIA
     Dosage: 2.5 MG EVERY DAY PO
     Route: 048
     Dates: start: 20110615, end: 20110620

REACTIONS (6)
  - BLOOD CREATININE INCREASED [None]
  - BLOOD UREA INCREASED [None]
  - INFREQUENT BOWEL MOVEMENTS [None]
  - ABDOMINAL PAIN [None]
  - CHEST PAIN [None]
  - RHABDOMYOLYSIS [None]
